FAERS Safety Report 19227838 (Version 1)
Quarter: 2021Q2

REPORT INFORMATION
  Report Type: Spontaneous
  Country: BR (occurrence: BR)
  Receive Date: 20210506
  Receipt Date: 20210506
  Transmission Date: 20210717
  Serious: Yes (Other)
  Sender: FDA-Public Use
  Company Number: NVSC2021BR100601

PATIENT
  Age: 68 Year
  Sex: Female

DRUGS (3)
  1. ESTRADOT [Suspect]
     Active Substance: ESTRADIOL
     Dosage: 100 UG (USED ONLY ONE PACKAGE (AS REPORTED))
     Route: 065
     Dates: start: 202012
  2. ESTREVA [Concomitant]
     Active Substance: ESTRADIOL
     Indication: PRODUCT USED FOR UNKNOWN INDICATION
     Dosage: STARTED (FOUR MONTHS AGO)
     Route: 065
  3. ESTRADOT [Suspect]
     Active Substance: ESTRADIOL
     Indication: PRODUCT USED FOR UNKNOWN INDICATION
     Dosage: 50 UG, QD
     Route: 065
     Dates: start: 2000, end: 202012

REACTIONS (4)
  - Wrong technique in product usage process [Unknown]
  - Feeling hot [Not Recovered/Not Resolved]
  - Drug dependence [Unknown]
  - Nervousness [Not Recovered/Not Resolved]

NARRATIVE: CASE EVENT DATE: 202012
